FAERS Safety Report 17534480 (Version 1)
Quarter: 2020Q1

REPORT INFORMATION
  Report Type: Spontaneous
  Country: GB (occurrence: GB)
  Receive Date: 20200312
  Receipt Date: 20200312
  Transmission Date: 20200409
  Serious: Yes (Life-Threatening, Other)
  Sender: FDA-Public Use
  Company Number: GB-PFIZER INC-2020107813

PATIENT
  Age: 16 Year
  Sex: Female

DRUGS (6)
  1. IFOSFAMIDE. [Concomitant]
     Active Substance: IFOSFAMIDE
     Dosage: UNK
  2. DAUNORUBICIN HYDROCHLORIDE. [Concomitant]
     Active Substance: DAUNORUBICIN HYDROCHLORIDE
     Dosage: UNK
  3. VANCOMYCIN HCL [Suspect]
     Active Substance: VANCOMYCIN HYDROCHLORIDE
     Dosage: 1000 MG, UNK
     Route: 042
     Dates: start: 20200113, end: 20200113
  4. MEROPENEM. [Suspect]
     Active Substance: MEROPENEM
     Dosage: 1000 MG, UNK
     Route: 042
     Dates: start: 20200113, end: 20200113
  5. VINCRISTINE [Concomitant]
     Active Substance: VINCRISTINE
     Dosage: UNK
  6. ETOPOSIDE. [Concomitant]
     Active Substance: ETOPOSIDE
     Dosage: UNK

REACTIONS (2)
  - Lactic acidosis [Unknown]
  - Anaphylactic reaction [Recovered/Resolved]

NARRATIVE: CASE EVENT DATE: 20200113
